FAERS Safety Report 16318575 (Version 1)
Quarter: 2019Q2

REPORT INFORMATION
  Report Type: Spontaneous
  Country: US (occurrence: US)
  Receive Date: 20190409
  Receipt Date: 20190409
  Transmission Date: 20190711
  Serious: Yes (Hospitalization)
  Sender: FDA-Public Use
  Company Number: None

PATIENT
  Age: 53 Year
  Sex: Male
  Weight: 105.9 kg

DRUGS (7)
  1. NUVIGIL [Suspect]
     Active Substance: ARMODAFINIL
     Dates: end: 20190322
  2. PANTOPRAZOLE [Concomitant]
     Active Substance: PANTOPRAZOLE
  3. HYDROCHLOROTHIAZIDE. [Concomitant]
     Active Substance: HYDROCHLOROTHIAZIDE
  4. DISULFIRAM. [Concomitant]
     Active Substance: DISULFIRAM
  5. POTASSIUM CHLORIDE. [Concomitant]
     Active Substance: POTASSIUM CHLORIDE
  6. ATORVASTATIN [Concomitant]
     Active Substance: ATORVASTATIN
  7. LISINOPRIL. [Concomitant]
     Active Substance: LISINOPRIL

REACTIONS (4)
  - Dysarthria [None]
  - Nodule [None]
  - Speech disorder [None]
  - Hypoaesthesia [None]

NARRATIVE: CASE EVENT DATE: 20190322
